FAERS Safety Report 6813326-9 (Version None)
Quarter: 2010Q3

REPORT INFORMATION
  Report Type: 
  Country: None (occurrence: None)
  Receive Date: 20100701
  Receipt Date: 20100621
  Transmission Date: 20110219
  Serious: Yes (Other)
  Sender: FDA-Public Use
  Company Number: ZA-BRISTOL-MYERS SQUIBB COMPANY-15169147

PATIENT
  Sex: Female

DRUGS (1)
  1. WARFARIN SODIUM [Suspect]
     Route: 064

REACTIONS (2)
  - LIMB HYPOPLASIA CONGENITAL [None]
  - MACROGLOSSIA [None]
